FAERS Safety Report 5283893-8 (Version None)
Quarter: 2007Q2

REPORT INFORMATION
  Report Type: 
  Country: None (occurrence: None)
  Receive Date: 20070402
  Receipt Date: 20070320
  Transmission Date: 20071010
  Serious: Yes (Other)
  Sender: FDA-Public Use
  Company Number: US-MERCK-0703USA04235

PATIENT
  Age: 44 Year
  Sex: Male

DRUGS (3)
  1. VYTORIN [Suspect]
     Indication: BLOOD CHOLESTEROL INCREASED
     Route: 048
     Dates: start: 20060628, end: 20070201
  2. DILANTIN [Concomitant]
     Route: 065
  3. LAMICTAL [Concomitant]
     Route: 065

REACTIONS (3)
  - CONVULSION [None]
  - DRUG LEVEL DECREASED [None]
  - ROAD TRAFFIC ACCIDENT [None]
